FAERS Safety Report 7004881-7 (Version None)
Quarter: 2010Q3

REPORT INFORMATION
  Report Type: 
  Country: None (occurrence: None)
  Receive Date: 20100917
  Receipt Date: 20100906
  Transmission Date: 20110219
  Serious: Yes (Hospitalization, Other)
  Sender: FDA-Public Use
  Company Number: 2010AP001908

PATIENT
  Age: 17 Year
  Sex: Female

DRUGS (2)
  1. CLARITHROMYCIN [Suspect]
     Indication: EAR INFECTION
     Dosage: 250 MG; TID PO
     Route: 048
     Dates: start: 20100903
  2. AMOXICILLIN TRIHYDRATE [Suspect]
     Indication: EAR INFECTION

REACTIONS (4)
  - ANAPHYLACTIC SHOCK [None]
  - DYSPNOEA [None]
  - ERYTHEMA [None]
  - RASH [None]
